FAERS Safety Report 8019808-9 (Version None)
Quarter: 2012Q1

REPORT INFORMATION
  Report Type: 
  Country: None (occurrence: None)
  Receive Date: 20120103
  Receipt Date: 20111229
  Transmission Date: 20120608
  Serious: Yes (Other)
  Sender: FDA-Public Use
  Company Number: DE-PFIZER INC-2011315840

PATIENT
  Sex: Male

DRUGS (2)
  1. ATORVASTATIN CALCIUM [Suspect]
     Dosage: 40 MG, UNK
  2. ATORVASTATIN CALCIUM [Suspect]
     Dosage: 20 MG, UNK
     Dates: start: 20060101

REACTIONS (4)
  - BLOOD HOMOCYSTEINE INCREASED [None]
  - CAROTID ARTERY OCCLUSION [None]
  - APOLIPOPROTEIN A-I INCREASED [None]
  - THERAPEUTIC RESPONSE UNEXPECTED [None]
